FAERS Safety Report 9601690 (Version 2)
Quarter: 2015Q4

REPORT INFORMATION
  Report Type: Report from Study
  Country: US (occurrence: US)
  Receive Date: 20131007
  Receipt Date: 20151030
  Transmission Date: 20160305
  Serious: Yes (Other)
  Sender: FDA-Public Use
  Company Number: US-ROCHE-1283938

PATIENT
  Age: 52 Year
  Sex: Female

DRUGS (2)
  1. XOLAIR [Suspect]
     Active Substance: OMALIZUMAB
     Indication: SEASONAL ALLERGY
  2. XOLAIR [Suspect]
     Active Substance: OMALIZUMAB
     Indication: ASTHMA
     Route: 065

REACTIONS (30)
  - Eye pain [Unknown]
  - Ear pain [Unknown]
  - Joint stiffness [Unknown]
  - Snoring [Unknown]
  - Cardiac murmur [Unknown]
  - Hypersensitivity [Unknown]
  - Deafness neurosensory [Unknown]
  - Dizziness [Unknown]
  - Muscle spasms [Unknown]
  - Swelling [Unknown]
  - Dyspepsia [Unknown]
  - Arthralgia [Unknown]
  - Pain in extremity [Unknown]
  - Insomnia [Unknown]
  - Vision blurred [Unknown]
  - Otorrhoea [Unknown]
  - Gastrooesophageal reflux disease [Unknown]
  - Abdominal pain [Unknown]
  - Nausea [Unknown]
  - Dysphagia [Unknown]
  - Facial pain [Unknown]
  - Feeling cold [Unknown]
  - Tinnitus [Unknown]
  - Dysphonia [Unknown]
  - Chest pain [Unknown]
  - Heart rate increased [Unknown]
  - Odynophagia [Unknown]
  - Joint swelling [Unknown]
  - Headache [Unknown]
  - Increased tendency to bruise [Unknown]

NARRATIVE: CASE EVENT DATE: 20130215
